FAERS Safety Report 16670025 (Version 3)
Quarter: 2019Q3

REPORT INFORMATION
  Report Type: Spontaneous
  Country: JP (occurrence: JP)
  Receive Date: 20190805
  Receipt Date: 20190829
  Transmission Date: 20191004
  Serious: Yes (Death, Other)
  Sender: FDA-Public Use
  Company Number: JP-BEH-2019105414

PATIENT
  Age: 71 Year
  Sex: Female
  Weight: 50.7 kg

DRUGS (11)
  1. ALCOHOL PAD [Suspect]
     Active Substance: ISOPROPYL ALCOHOL
     Indication: HAEMOSTASIS
     Dosage: 1250 INTERNATIONAL UNIT
     Route: 065
     Dates: start: 20190404, end: 20190404
  2. KCENTRA [Suspect]
     Active Substance: COAGULATION FACTOR IX HUMAN\COAGULATION FACTOR VII HUMAN\COAGULATION FACTOR X HUMAN\PROTEIN C\PROTEIN S HUMAN\PROTHROMBIN
     Indication: HAEMOSTASIS
     Dosage: 1250 INTERNATIONAL UNIT
     Route: 065
     Dates: start: 20190404, end: 20190404
  3. ALBUMIN (HUMAN) [Concomitant]
     Active Substance: ALBUMIN HUMAN
     Dosage: UNK
     Route: 065
     Dates: start: 20190415, end: 20190417
  4. ALBUMIN (HUMAN) [Concomitant]
     Active Substance: ALBUMIN HUMAN
     Dosage: UNK
     Route: 065
     Dates: start: 20190412, end: 20190412
  5. PREDONINE [PREDNISOLONE ACETATE] [Concomitant]
     Active Substance: PREDNISOLONE ACETATE
     Indication: NEOPLASM MALIGNANT
     Dosage: 50 MILLIGRAM, QD
     Route: 042
     Dates: start: 20190511, end: 20190528
  6. KCENTRA [Suspect]
     Active Substance: COAGULATION FACTOR IX HUMAN\COAGULATION FACTOR VII HUMAN\COAGULATION FACTOR X HUMAN\PROTEIN C\PROTEIN S HUMAN\PROTHROMBIN
     Indication: SURGERY
  7. KCENTRA [Suspect]
     Active Substance: COAGULATION FACTOR IX HUMAN\COAGULATION FACTOR VII HUMAN\COAGULATION FACTOR X HUMAN\PROTEIN C\PROTEIN S HUMAN\PROTHROMBIN
     Indication: SURGERY
  8. WARFARIN [Concomitant]
     Active Substance: WARFARIN
     Indication: DEEP VEIN THROMBOSIS
     Dosage: 4 MILLIGRAM
     Route: 048
     Dates: start: 20190330, end: 20190403
  9. KAYTWO N [Concomitant]
     Active Substance: MENATETRENONE
     Indication: HAEMATOMA
     Dosage: 10 MILLIGRAM
     Route: 042
     Dates: start: 20190404, end: 20190404
  10. LIXIANA [Concomitant]
     Active Substance: EDOXABAN TOSYLATE
     Dosage: 30 UNK
     Route: 065
     Dates: start: 20190426, end: 20190428
  11. KAYTWO N [Concomitant]
     Active Substance: MENATETRENONE
     Indication: PROPHYLAXIS
     Dosage: 10 UNK
     Route: 042
     Dates: start: 20190404, end: 20190404

REACTIONS (6)
  - Systemic candida [Recovering/Resolving]
  - Genital haemorrhage [Recovering/Resolving]
  - Hepatic failure [Fatal]
  - Cholangitis [Fatal]
  - Oxygen saturation decreased [Fatal]
  - Pulmonary embolism [Fatal]

NARRATIVE: CASE EVENT DATE: 20190409
